FAERS Safety Report 18469311 (Version 3)
Quarter: 2022Q2

REPORT INFORMATION
  Report Type: Report from Study
  Country: US (occurrence: US)
  Receive Date: 20201105
  Receipt Date: 20220623
  Transmission Date: 20220721
  Serious: Yes (Other)
  Sender: FDA-Public Use
  Company Number: US-CELGENE-USA-20191206215

PATIENT
  Age: 42 Year
  Sex: Female

DRUGS (3)
  1. OTEZLA [Suspect]
     Active Substance: APREMILAST
     Indication: Psoriasis
     Dosage: 30 MILLIGRAM, BID
     Route: 048
     Dates: start: 20191011
  2. OTEZLA [Suspect]
     Active Substance: APREMILAST
     Indication: Behcet^s syndrome
     Dosage: 30 MILLIGRAM, BID
     Route: 065
  3. OTEZLA [Suspect]
     Active Substance: APREMILAST
     Indication: Psoriatic arthropathy

REACTIONS (5)
  - Behcet^s syndrome [Unknown]
  - Psoriasis [Not Recovered/Not Resolved]
  - Back pain [Unknown]
  - Swelling [Unknown]
  - Headache [Unknown]

NARRATIVE: CASE EVENT DATE: 20201029
